FAERS Safety Report 20680021 (Version 1)
Quarter: 2022Q2

REPORT INFORMATION
  Report Type: Spontaneous
  Country: US (occurrence: None)
  Receive Date: 20220405
  Receipt Date: 20220405
  Transmission Date: 20220721
  Serious: No
  Sender: FDA-Public Use
  Company Number: None

PATIENT
  Age: 52 Year
  Sex: Female

DRUGS (1)
  1. LORATADINE [Suspect]
     Active Substance: LORATADINE

REACTIONS (6)
  - Product quality issue [None]
  - Dry mouth [None]
  - Dry throat [None]
  - Ear pain [None]
  - Paraesthesia [None]
  - Respiratory rate increased [None]

NARRATIVE: CASE EVENT DATE: 20220329
